FAERS Safety Report 16165936 (Version 1)
Quarter: 2019Q2

REPORT INFORMATION
  Report Type: Spontaneous
  Country: GB (occurrence: GB)
  Receive Date: 20190406
  Receipt Date: 20190406
  Transmission Date: 20190711
  Serious: Yes (Hospitalization)
  Sender: FDA-Public Use
  Company Number: GB-ACCORD-117862

PATIENT
  Age: 29 Year
  Sex: Female
  Weight: 78.8 kg

DRUGS (1)
  1. MYCOPHENOLIC ACID. [Suspect]
     Active Substance: MYCOPHENOLIC ACID
     Indication: PRODUCT USED FOR UNKNOWN INDICATION
     Route: 048
     Dates: start: 20190129, end: 20190129

REACTIONS (8)
  - Nausea [Unknown]
  - Dizziness postural [Recovered/Resolved]
  - Abdominal pain [Unknown]
  - Diarrhoea [Unknown]
  - Paraesthesia oral [Unknown]
  - Back pain [Unknown]
  - Throat irritation [Unknown]
  - Chest pain [Unknown]

NARRATIVE: CASE EVENT DATE: 20190129
